FAERS Safety Report 18591429 (Version 2)
Quarter: 2020Q4

REPORT INFORMATION
  Report Type: Report from Study
  Country: ES (occurrence: ES)
  Receive Date: 20201208
  Receipt Date: 20201217
  Transmission Date: 20210114
  Serious: Yes (Hospitalization)
  Sender: FDA-Public Use
  Company Number: ES-TAKEDA-2020TUS047755

PATIENT
  Sex: Male

DRUGS (4)
  1. KEPPRA [Concomitant]
     Active Substance: LEVETIRACETAM
     Dosage: 9,5 ML EVERY 2H
     Route: 065
  2. STESOLID [Concomitant]
     Active Substance: DIAZEPAM
     Dosage: 10 MG WHEN CRISIS (MORE THAN 2)
     Route: 065
  3. CARBAMACEPINA [Concomitant]
     Active Substance: CARBAMAZEPINE
     Dosage: 400 MG- 0- 200MG
     Route: 065
  4. IDURSULFASE [Suspect]
     Active Substance: IDURSULFASE
     Indication: MUCOPOLYSACCHARIDOSIS II
     Dosage: 3 VIALS, 1/WEEK
     Route: 065
     Dates: start: 20140114

REACTIONS (2)
  - Inappropriate schedule of product administration [Recovered/Resolved]
  - Hospitalisation [Recovered/Resolved]

NARRATIVE: CASE EVENT DATE: 20201028
